FAERS Safety Report 18228021 (Version 1)
Quarter: 2020Q3

REPORT INFORMATION
  Report Type: Spontaneous
  Country: US (occurrence: US)
  Receive Date: 20200903
  Receipt Date: 20200903
  Transmission Date: 20201103
  Serious: No
  Sender: FDA-Public Use
  Company Number: US-AKRON, INC.-2089363

PATIENT
  Sex: Male

DRUGS (1)
  1. COSOPT PF [Suspect]
     Active Substance: DORZOLAMIDE HYDROCHLORIDE\TIMOLOL MALEATE
     Route: 047
     Dates: start: 20200620, end: 20200819

REACTIONS (5)
  - Nausea [Recovering/Resolving]
  - Restless legs syndrome [Recovering/Resolving]
  - Abdominal pain [Recovering/Resolving]
  - Alopecia [Recovering/Resolving]
  - Parasomnia [Recovering/Resolving]
